FAERS Safety Report 25889830 (Version 1)
Quarter: 2025Q4

REPORT INFORMATION
  Report Type: Spontaneous
  Country: CN (occurrence: CN)
  Receive Date: 20251007
  Receipt Date: 20251007
  Transmission Date: 20260117
  Serious: Yes (Other)
  Sender: MYLAN
  Company Number: CN-MYLANLABS-2025M1083894

PATIENT
  Age: 48 Year
  Sex: Female
  Weight: 60 kg

DRUGS (4)
  1. CARDURA XL [Suspect]
     Active Substance: DOXAZOSIN MESYLATE
     Indication: Blood pressure management
     Dosage: 4 MILLIGRAM, QD (AT BEDTIME)
     Dates: start: 20250722, end: 20250929
  2. CARDURA XL [Suspect]
     Active Substance: DOXAZOSIN MESYLATE
     Dosage: 4 MILLIGRAM, QD (AT BEDTIME)
     Route: 048
     Dates: start: 20250722, end: 20250929
  3. CARDURA XL [Suspect]
     Active Substance: DOXAZOSIN MESYLATE
     Dosage: 4 MILLIGRAM, QD (AT BEDTIME)
     Route: 048
     Dates: start: 20250722, end: 20250929
  4. CARDURA XL [Suspect]
     Active Substance: DOXAZOSIN MESYLATE
     Dosage: 4 MILLIGRAM, QD (AT BEDTIME)
     Dates: start: 20250722, end: 20250929

REACTIONS (2)
  - Amaurosis [Recovering/Resolving]
  - Dizziness [Recovering/Resolving]

NARRATIVE: CASE EVENT DATE: 20250723
